FAERS Safety Report 9505869 (Version 1)
Quarter: 2013Q1

REPORT INFORMATION
  Report Type: Spontaneous
  Country: US (occurrence: None)
  Receive Date: 20130219
  Receipt Date: 20130219
  Transmission Date: 20140127
  Serious: Yes (Disabling, Other)
  Sender: FDA-Public Use
  Company Number: 1201USA02760

PATIENT
  Age: 73 Year
  Sex: Male
  Weight: 82.1 kg

DRUGS (6)
  1. ZOCOR [Suspect]
     Indication: BLOOD CHOLESTEROL INCREASED
     Route: 048
     Dates: start: 201104, end: 201201
  2. ZOCOR [Suspect]
     Indication: CORONARY ARTERY DISEASE
     Route: 048
     Dates: start: 201104, end: 201201
  3. CARVEDILOL (CARVEDILOL) [Concomitant]
  4. MK-0152 (HYDROCHLOROTHIAZIDE) [Concomitant]
  5. PRILOSEC [Concomitant]
  6. PRADAXA (DABIGATRAN ETEXILATE) [Concomitant]

REACTIONS (2)
  - Rhabdomyolysis [None]
  - Liver function test abnormal [None]
